FAERS Safety Report 5162186-3 (Version None)
Quarter: 2006Q4

REPORT INFORMATION
  Report Type: 
  Country: None (occurrence: None)
  Receive Date: 20061121
  Receipt Date: 20061116
  Transmission Date: 20070319
  Serious: Yes (Congenital Anomaly)
  Sender: FDA-Public Use
  Company Number: THQ2006A00516

PATIENT
  Age: 1 Day
  Sex: Male
  Weight: 4.29 kg

DRUGS (1)
  1. HELICLEAR (LANSOPRAZOLE, CLARITHROMYCIN, AMOXICILLIN) [Suspect]
     Indication: HELICOBACTER INFECTION
     Dosage: TRANSPLACENTAL
     Route: 064
     Dates: start: 20050310, end: 20050317

REACTIONS (1)
  - ANKYLOGLOSSIA CONGENITAL [None]
